FAERS Safety Report 23654973 (Version 2)
Quarter: 2024Q2

REPORT INFORMATION
  Report Type: Spontaneous
  Country: ES (occurrence: ES)
  Receive Date: 20240320
  Receipt Date: 20240507
  Transmission Date: 20240716
  Serious: Yes (Hospitalization)
  Sender: FDA-Public Use
  Company Number: ES-ELI_LILLY_AND_COMPANY-ES202403008578

PATIENT
  Age: 49 Year
  Sex: Female
  Weight: 80 kg

DRUGS (2)
  1. ABEMACICLIB [Suspect]
     Active Substance: ABEMACICLIB
     Indication: Product used for unknown indication
     Dosage: UNK UNK, UNKNOWN
     Route: 048
     Dates: start: 20240228, end: 20240313
  2. ABEMACICLIB [Suspect]
     Active Substance: ABEMACICLIB
     Dosage: 150 MG, DAILY
     Route: 048
     Dates: start: 20240410

REACTIONS (3)
  - Pancreatitis necrotising [Recovered/Resolved]
  - Cholelithiasis [Unknown]
  - Amylase increased [Unknown]
